FAERS Safety Report 5495305-X (Version None)
Quarter: 2007Q4

REPORT INFORMATION
  Report Type: 
  Country: None (occurrence: None)
  Receive Date: 20071024
  Receipt Date: 20071012
  Transmission Date: 20080405
  Serious: Yes (Other)
  Sender: FDA-Public Use
  Company Number: CH-PFIZER INC-2007086608

PATIENT
  Sex: Male

DRUGS (5)
  1. SERTRALINE [Suspect]
     Indication: OBSESSIVE-COMPULSIVE DISORDER
     Dosage: DAILY DOSE:100MG
  2. RISPERIDONE [Suspect]
     Indication: SCHIZOPHRENIA
     Dosage: DAILY DOSE:50MG-FREQ:EVERY 15 DAYS
     Route: 030
  3. RISPERIDONE [Suspect]
     Indication: AGGRESSION
     Dosage: DAILY DOSE:3MG
     Route: 048
     Dates: start: 20030901, end: 20041201
  4. OLANZAPINE [Suspect]
     Indication: SCHIZOPHRENIA
     Dosage: DAILY DOSE:10MG
  5. OLANZAPINE [Suspect]
     Indication: AGGRESSION

REACTIONS (12)
  - AKATHISIA [None]
  - BLEPHAROSPASM [None]
  - CONDITION AGGRAVATED [None]
  - CONJUNCTIVITIS [None]
  - DRY EYE [None]
  - DYSPEPSIA [None]
  - HYPOMANIA [None]
  - MUSCLE SPASMS [None]
  - PSYCHOMOTOR SKILLS IMPAIRED [None]
  - RESTLESSNESS [None]
  - TENSION [None]
  - TREMOR [None]
